FAERS Safety Report 9301423 (Version 1)
Quarter: 2013Q2

REPORT INFORMATION
  Report Type: Spontaneous
  Country: US (occurrence: US)
  Receive Date: 20130521
  Receipt Date: 20130521
  Transmission Date: 20140414
  Serious: Yes (Other)
  Sender: FDA-Public Use
  Company Number: US-BRISTOL-MYERS SQUIBB COMPANY-18896100

PATIENT
  Age: 77 Year
  Sex: Male
  Weight: 95.69 kg

DRUGS (2)
  1. ERBITUX [Suspect]
     Indication: NEOPLASM MALIGNANT
     Dates: start: 201304
  2. DECADRON [Suspect]

REACTIONS (3)
  - Lymphadenopathy [Unknown]
  - Acne [Unknown]
  - Weight decreased [Unknown]
